FAERS Safety Report 20901995 (Version 1)
Quarter: 2022Q2

REPORT INFORMATION
  Report Type: Spontaneous
  Country: MD (occurrence: MD)
  Receive Date: 20220601
  Receipt Date: 20220601
  Transmission Date: 20220721
  Serious: Yes (Other)
  Sender: FDA-Public Use
  Company Number: MD-FreseniusKabi-FK202207477

PATIENT
  Age: 31 Year
  Sex: Female

DRUGS (1)
  1. PROGESTERONE INJECTION USP [Suspect]
     Active Substance: PROGESTERONE
     Indication: In vitro fertilisation
     Route: 065

REACTIONS (2)
  - Cholestasis of pregnancy [Unknown]
  - Exposure during pregnancy [Recovered/Resolved]
